FAERS Safety Report 8427282-3 (Version None)
Quarter: 2012Q2

REPORT INFORMATION
  Report Type: 
  Country: None (occurrence: None)
  Receive Date: 20120611
  Receipt Date: 20120525
  Transmission Date: 20120825
  Serious: Yes (Hospitalization)
  Sender: FDA-Public Use
  Company Number: JP-GLAXOSMITHKLINE-B0804477A

PATIENT
  Sex: Female

DRUGS (4)
  1. RISPERIDONE [Concomitant]
     Dosage: 1MG PER DAY
     Route: 048
  2. RIZE [Concomitant]
     Dosage: 15MG PER DAY
     Route: 048
  3. LAMICTAL [Suspect]
     Indication: BIPOLAR DISORDER
     Dosage: 25MG PER DAY
     Route: 048
     Dates: start: 20120427, end: 20120507
  4. LOXONIN [Concomitant]
     Indication: ANALGESIC THERAPY
     Route: 048

REACTIONS (5)
  - PYREXIA [None]
  - GENERALISED ERYTHEMA [None]
  - PLATELET COUNT DECREASED [None]
  - DRUG ERUPTION [None]
  - C-REACTIVE PROTEIN INCREASED [None]
